FAERS Safety Report 9339258 (Version 1)
Quarter: 2013Q2

REPORT INFORMATION
  Report Type: Spontaneous
  Country: US (occurrence: None)
  Receive Date: 20130607
  Receipt Date: 20130607
  Transmission Date: 20140414
  Serious: Yes (Death)
  Sender: FDA-Public Use
  Company Number: None

PATIENT
  Age: 61 Year
  Sex: Male

DRUGS (2)
  1. PROMACTA [Suspect]
     Indication: IDIOPATHIC THROMBOCYTOPENIC PURPURA
     Dates: start: 201304
  2. PROMACTA [Suspect]
     Dates: start: 201302, end: 201304

REACTIONS (6)
  - Cardiac arrest [None]
  - Coronary artery occlusion [None]
  - Ventricular hypokinesia [None]
  - Left ventricular dysfunction [None]
  - Renal failure acute [None]
  - Metabolic acidosis [None]
